FAERS Safety Report 17924611 (Version 1)
Quarter: 2020Q2

REPORT INFORMATION
  Report Type: Other
  Country: US (occurrence: US)
  Receive Date: 20200622
  Receipt Date: 20200622
  Transmission Date: 20200714
  Serious: No
  Sender: FDA-Public Use
  Company Number: US-ACORDA-ACO_165026_2020

PATIENT
  Age: 63 Year
  Sex: Male

DRUGS (3)
  1. APOKYN [Suspect]
     Active Substance: APOMORPHINE HYDROCHLORIDE
     Indication: PRODUCT USED FOR UNKNOWN INDICATION
     Dosage: UNK
     Route: 065
     Dates: end: 20200411
  2. RYTARY [Suspect]
     Active Substance: CARBIDOPA\LEVODOPA
     Indication: PRODUCT USED FOR UNKNOWN INDICATION
     Dosage: UNK
     Route: 065
  3. INBRIJA [Suspect]
     Active Substance: LEVODOPA
     Indication: PRODUCT USED FOR UNKNOWN INDICATION
     Dosage: UNK, HIGH DOSE
     Route: 065

REACTIONS (8)
  - Aggression [Unknown]
  - Disorientation [Unknown]
  - Hallucination [Unknown]
  - Amnesia [Unknown]
  - Hallucination [Unknown]
  - Personality disorder [Unknown]
  - Confusional state [Unknown]
  - Condition aggravated [Unknown]

NARRATIVE: CASE EVENT DATE: 202002
